FAERS Safety Report 4784988-5 (Version None)
Quarter: 2005Q3

REPORT INFORMATION
  Report Type: 
  Country: None (occurrence: None)
  Receive Date: 20050928
  Receipt Date: 20050926
  Transmission Date: 20060218
  Serious: Yes (Death)
  Sender: FDA-Public Use
  Company Number: S05-USA-04006-01

PATIENT
  Age: 39 Year
  Sex: Male

DRUGS (3)
  1. LEXAPRO [Suspect]
     Dosage: 10 MG QD PO
     Route: 048
     Dates: start: 20050308, end: 20050318
  2. TRAMADOL [Concomitant]
  3. MINOCYCLINE [Concomitant]

REACTIONS (4)
  - COMPLETED SUICIDE [None]
  - SUICIDAL IDEATION [None]
  - THINKING ABNORMAL [None]
  - TOXICOLOGIC TEST ABNORMAL [None]
